FAERS Safety Report 7029499-1 (Version None)
Quarter: 2010Q4

REPORT INFORMATION
  Report Type: 
  Country: None (occurrence: None)
  Receive Date: 20101005
  Receipt Date: 20100922
  Transmission Date: 20110411
  Serious: Yes (Other)
  Sender: FDA-Public Use
  Company Number: IT-GENENTECH-307149

PATIENT
  Sex: Female

DRUGS (7)
  1. MABTHERA [Suspect]
     Indication: NON-HODGKIN'S LYMPHOMA STAGE IV
     Dosage: 500 MG, UNK
     Route: 042
     Dates: start: 20100427
  2. MABTHERA [Suspect]
     Dosage: 500 MG, UNK
     Route: 042
     Dates: end: 20100810
  3. ENDOXAN [Concomitant]
     Indication: NON-HODGKIN'S LYMPHOMA STAGE IV
     Dosage: 1000 MG, UNK
     Route: 042
     Dates: start: 20100427, end: 20100810
  4. VINCRISTINE [Concomitant]
     Indication: NON-HODGKIN'S LYMPHOMA STAGE IV
     Dosage: 2 MG, UNK
     Route: 042
     Dates: start: 20100427, end: 20100810
  5. DELTACORTENE [Concomitant]
     Indication: NON-HODGKIN'S LYMPHOMA STAGE IV
     Dosage: 100 MG, UNK
     Route: 048
     Dates: start: 20100427, end: 20100810
  6. CORTISONE [Concomitant]
     Indication: PREMEDICATION
     Dosage: UNK
  7. ANTIHISTAMINICS [Concomitant]
     Indication: PREMEDICATION
     Dosage: UNK

REACTIONS (3)
  - PRURITUS GENERALISED [None]
  - TREMOR [None]
  - URTICARIA [None]
